FAERS Safety Report 4705983-8 (Version None)
Quarter: 2005Q2

REPORT INFORMATION
  Report Type: 
  Country: None (occurrence: None)
  Receive Date: 20050629
  Receipt Date: 20050623
  Transmission Date: 20051028
  Serious: Yes (Hospitalization)
  Sender: FDA-Public Use
  Company Number: TPA2005A00680

PATIENT
  Age: 67 Year
  Sex: Female
  Weight: 111.1313 kg

DRUGS (8)
  1. ACTOS [Suspect]
     Indication: DIABETES MELLITUS NON-INSULIN-DEPENDENT
     Dosage: 30 MG, 1 IN 1 D, PER ORAL
     Route: 048
     Dates: start: 20020615
  2. TAMOXIFEN CITRATE [Suspect]
  3. COUMADIN [Concomitant]
  4. ENALAPRIL MALEATE [Concomitant]
  5. METOPROLOL TARTRATE [Concomitant]
  6. HYDROCHLOROTHIAZIDE [Concomitant]
  7. ARIMIDEX [Concomitant]
  8. HYDROXYZINE [Concomitant]

REACTIONS (6)
  - BACK PAIN [None]
  - BREAST CANCER FEMALE [None]
  - DEEP VEIN THROMBOSIS [None]
  - NEPHROLITHIASIS [None]
  - OEDEMA PERIPHERAL [None]
  - THROMBOSIS [None]
